FAERS Safety Report 9853264 (Version 1)
Quarter: 2014Q1

REPORT INFORMATION
  Report Type: Report from Study
  Country: CA (occurrence: CA)
  Receive Date: 20140129
  Receipt Date: 20140129
  Transmission Date: 20141002
  Serious: Yes (Hospitalization, Other)
  Sender: FDA-Public Use
  Company Number: CA-ABBVIE-14P-028-1192642-00

PATIENT
  Age: 29 Year
  Sex: Female

DRUGS (11)
  1. HUMIRA [Suspect]
     Indication: CROHN^S DISEASE
     Dates: start: 2011, end: 2011
  2. HUMIRA [Suspect]
  3. DILAUDID [Suspect]
     Indication: PRODUCT USED FOR UNKNOWN INDICATION
     Dates: end: 2013
  4. MORPHINE [Suspect]
     Indication: PRODUCT USED FOR UNKNOWN INDICATION
     Dates: end: 2013
  5. COVERSYL [Concomitant]
     Indication: HYPERTENSION
  6. GRAVOL [Concomitant]
     Indication: NAUSEA
  7. STEMETIL [Concomitant]
     Indication: NAUSEA
  8. TRAZODONE [Concomitant]
     Indication: INSOMNIA
     Dosage: AT BEDTIME
  9. CLORAZEPAM [Concomitant]
     Indication: INSOMNIA
     Dosage: AT BEDTIME
  10. TECTA [Concomitant]
     Indication: GASTROOESOPHAGEAL REFLUX DISEASE
  11. ANTI-DEPRESSANT [Concomitant]
     Indication: PRODUCT USED FOR UNKNOWN INDICATION

REACTIONS (19)
  - Colitis ulcerative [Not Recovered/Not Resolved]
  - Crohn^s disease [Not Recovered/Not Resolved]
  - Abdominal pain [Not Recovered/Not Resolved]
  - Nausea [Not Recovered/Not Resolved]
  - Diarrhoea [Not Recovered/Not Resolved]
  - Mouth ulceration [Not Recovered/Not Resolved]
  - Arthralgia [Not Recovered/Not Resolved]
  - Myalgia [Not Recovered/Not Resolved]
  - Wound dehiscence [Not Recovered/Not Resolved]
  - Intestinal perforation [Not Recovered/Not Resolved]
  - Abdominal distension [Not Recovered/Not Resolved]
  - Alopecia [Not Recovered/Not Resolved]
  - Skin lesion [Recovered/Resolved]
  - Lymphadenopathy [Not Recovered/Not Resolved]
  - Psoriasis [Not Recovered/Not Resolved]
  - Drug dependence [Recovered/Resolved]
  - Skin lesion [Unknown]
  - Lymphadenopathy [Not Recovered/Not Resolved]
  - Lymph gland infection [Not Recovered/Not Resolved]
